FAERS Safety Report 6425498-9 (Version None)
Quarter: 2009Q4

REPORT INFORMATION
  Report Type: 
  Country: None (occurrence: None)
  Receive Date: 20091103
  Receipt Date: 20091027
  Transmission Date: 20100525
  Serious: Yes (Hospitalization)
  Sender: FDA-Public Use
  Company Number: US-ASTRAZENECA-2009SE21354

PATIENT
  Sex: Female

DRUGS (4)
  1. CRESTOR [Suspect]
     Route: 048
     Dates: start: 20091006
  2. CRESTOR [Suspect]
     Route: 048
  3. ANTIBIOTICS [Concomitant]
  4. STEROIDS [Concomitant]

REACTIONS (6)
  - BACK PAIN [None]
  - HAEMATURIA [None]
  - MYCOPLASMA TEST POSITIVE [None]
  - PRE-EXISTING CONDITION IMPROVED [None]
  - PROTEINURIA [None]
  - THERAPEUTIC RESPONSE UNEXPECTED [None]
